FAERS Safety Report 4811854-9 (Version None)
Quarter: 2005Q4

REPORT INFORMATION
  Report Type: 
  Country: None (occurrence: None)
  Receive Date: 20051026
  Receipt Date: 20051017
  Transmission Date: 20060501
  Serious: Yes (Other)
  Sender: FDA-Public Use
  Company Number: 2005124566

PATIENT
  Age: 54 Year
  Sex: Male
  Weight: 109 kg

DRUGS (3)
  1. NORVASC [Suspect]
     Indication: HYPERTENSION
     Dosage: 5 MG (5 MG DAILY) ORAL
     Route: 048
     Dates: start: 20050101, end: 20050901
  2. ATACAND PLUS                (CANDESARTAN CILEXETIL, HYDROCHLOROTHIAZID [Concomitant]
  3. FLOTRIN                        (TERAZOSIN HYDROCHLORIDE) [Concomitant]

REACTIONS (1)
  - HEPATIC STEATOSIS [None]
